FAERS Safety Report 6548372-6 (Version None)
Quarter: 2010Q1

REPORT INFORMATION
  Report Type: 
  Country: None (occurrence: None)
  Receive Date: 20100124
  Receipt Date: 20090519
  Transmission Date: 20100710
  Serious: No
  Sender: FDA-Public Use
  Company Number: US-ALLERGAN-0907008US

PATIENT
  Age: 49 Year
  Sex: Female

DRUGS (6)
  1. RESTASIS [Suspect]
     Indication: DRY EYE
     Dosage: UNK, UNKNOWN
     Route: 047
  2. PLAQUENIL [Concomitant]
     Dosage: 200 MG, BID
  3. METHOTREXATE [Concomitant]
     Dosage: 12.5 MG, Q WEEK
  4. ESTRACE [Concomitant]
     Dosage: 2 MG, QD
  5. DILTIAZEM [Concomitant]
     Dosage: 180 MG, QD
  6. PROPRANOLOL [Concomitant]
     Dosage: UNK, BID

REACTIONS (3)
  - EYE IRRITATION [None]
  - HEADACHE [None]
  - INSOMNIA [None]
